FAERS Safety Report 14307856 (Version 4)
Quarter: 2018Q1

REPORT INFORMATION
  Report Type: Spontaneous
  Country: IT (occurrence: IT)
  Receive Date: 20171220
  Receipt Date: 20180206
  Transmission Date: 20180509
  Serious: Yes (Other)
  Sender: FDA-Public Use
  Company Number: IT-KRKA, D.D., NOVO MESTO-2037468

PATIENT
  Age: 33 Year
  Sex: Male
  Weight: 100 kg

DRUGS (9)
  1. LANSOPRAZOLE GENERIC [Suspect]
     Active Substance: LANSOPRAZOLE
     Indication: PRODUCT USED FOR UNKNOWN INDICATION
     Route: 048
     Dates: start: 20171112, end: 20171112
  2. HALDOL (HALOPERIDOL LACTATE) [Suspect]
     Active Substance: HALOPERIDOL LACTATE
     Route: 048
     Dates: start: 20171112, end: 20171112
  3. RISPERIDONE. [Suspect]
     Active Substance: RISPERIDONE
     Route: 048
     Dates: start: 20171112, end: 20171112
  4. LORAZEPAM. [Suspect]
     Active Substance: LORAZEPAM
     Route: 048
     Dates: start: 20171112, end: 20171112
  5. LORMETAZEPAM [Suspect]
     Active Substance: LORMETAZEPAM
     Route: 048
     Dates: start: 20171112, end: 20171112
  6. ZUCLOPENTHIXOL DIHYDROCHLORIDE [Suspect]
     Active Substance: ZUCLOPENTHIXOL HYDROCHLORIDE
     Route: 048
     Dates: start: 20171112, end: 20171112
  7. QUETIAPINE. [Suspect]
     Active Substance: QUETIAPINE
     Route: 048
     Dates: start: 20171112, end: 20171112
  8. AKINETON [Suspect]
     Active Substance: BIPERIDEN HYDROCHLORIDE
     Route: 048
     Dates: start: 20171112, end: 20171112
  9. QUETIAPINA ACCORD [Suspect]
     Active Substance: QUETIAPINE
     Route: 048

REACTIONS (3)
  - Intentional self-injury [Unknown]
  - Self-injurious ideation [Unknown]
  - Intentional product misuse [Unknown]

NARRATIVE: CASE EVENT DATE: 20171112
